FAERS Safety Report 8072646-3 (Version None)
Quarter: 2012Q1

REPORT INFORMATION
  Report Type: 
  Country: None (occurrence: None)
  Receive Date: 20120126
  Receipt Date: 20120116
  Transmission Date: 20120608
  Serious: Yes (Hospitalization)
  Sender: FDA-Public Use
  Company Number: US-JNJFOC-20120106009

PATIENT
  Sex: Male
  Weight: 92.99 kg

DRUGS (3)
  1. XARELTO [Suspect]
     Indication: ATRIAL FIBRILLATION
     Route: 048
     Dates: start: 20111201, end: 20120101
  2. PLAVIX [Concomitant]
  3. ASPIRIN [Concomitant]

REACTIONS (3)
  - FALL [None]
  - HAEMATOCRIT DECREASED [None]
  - CONTUSION [None]
